FAERS Safety Report 7074059-X (Version None)
Quarter: 2010Q4

REPORT INFORMATION
  Report Type: 
  Country: None (occurrence: None)
  Receive Date: 20101029
  Receipt Date: 20101021
  Transmission Date: 20110411
  Serious: Yes (Hospitalization)
  Sender: FDA-Public Use
  Company Number: JP-ROCHE-711068

PATIENT
  Sex: Female
  Weight: 52 kg

DRUGS (15)
  1. ACTEMRA [Suspect]
     Indication: RHEUMATOID ARTHRITIS
     Route: 041
     Dates: start: 20090224, end: 20090224
  2. ACTEMRA [Suspect]
     Route: 041
     Dates: start: 20090324, end: 20090324
  3. ACTEMRA [Suspect]
     Route: 041
     Dates: start: 20090421, end: 20090421
  4. ACTEMRA [Suspect]
     Route: 041
     Dates: start: 20090519, end: 20090519
  5. ACTEMRA [Suspect]
     Route: 041
     Dates: start: 20090616, end: 20090616
  6. ACTEMRA [Suspect]
     Route: 041
     Dates: start: 20090714, end: 20090714
  7. ACTEMRA [Suspect]
     Route: 041
     Dates: start: 20090807, end: 20090807
  8. ACTEMRA [Suspect]
     Route: 041
     Dates: start: 20091030
  9. METHOTREXATE [Suspect]
     Indication: RHEUMATOID ARTHRITIS
     Dosage: FORM:PERORAL AGENT, NOTE: AMOUNT 3
     Route: 048
     Dates: start: 20080725, end: 20090518
  10. ISCOTIN [Concomitant]
     Route: 048
  11. PEON [Concomitant]
     Route: 048
  12. MUCOSTA [Concomitant]
     Route: 048
  13. BENET [Concomitant]
     Route: 048
  14. ALFACALCIDOL [Concomitant]
     Dosage: DRUG NAME: CALFALEAD
     Route: 048
  15. DICLOFENAC SODIUM [Concomitant]
     Dosage: TAPE
     Route: 062

REACTIONS (3)
  - ABDOMINAL PAIN UPPER [None]
  - GASTRITIS [None]
  - REFLUX OESOPHAGITIS [None]
